FAERS Safety Report 8644096 (Version 3)
Quarter: 2012Q4

REPORT INFORMATION
  Report Type: 
  Country: US (occurrence: US)
  Receive Date: 20120629
  Receipt Date: 20121019
  Transmission Date: 20130627
  Serious: Yes (Other)
  Sender: FDA-Public Use
  Company Number: US-JNJFOC-20120613541

PATIENT
  Age: 63 Year
  Sex: Male

DRUGS (4)
  1. ITRACONAZOLE [Suspect]
     Indication: HISTOPLASMOSIS
     Route: 048
     Dates: start: 200606, end: 200703
  2. AMPHOTERICIN B [Suspect]
     Indication: HISTOPLASMOSIS
     Dosage: for 2 weeks
     Route: 065
     Dates: start: 200606
  3. TACROLIMUS [Suspect]
     Indication: HISTOPLASMOSIS
     Route: 065
  4. PREDNISONE [Suspect]
     Indication: HISTOPLASMOSIS
     Route: 065

REACTIONS (2)
  - Gastrointestinal disorder [Recovered/Resolved]
  - Drug intolerance [Recovered/Resolved]
